FAERS Safety Report 21682662 (Version 1)
Quarter: 2022Q4

REPORT INFORMATION
  Report Type: Report from Study
  Country: MY (occurrence: MY)
  Receive Date: 20221205
  Receipt Date: 20221205
  Transmission Date: 20230112
  Serious: Yes (Death, Hospitalization)
  Sender: FDA-Public Use
  Company Number: MY-002147023-NVSC2022MY227425

PATIENT
  Sex: Male

DRUGS (1)
  1. CAPMATINIB [Suspect]
     Active Substance: CAPMATINIB
     Indication: Gene mutation
     Dosage: 400 MG, BID
     Route: 048
     Dates: start: 20220714, end: 202208

REACTIONS (2)
  - Death [Fatal]
  - Drug ineffective [Unknown]
